FAERS Safety Report 5491520-X (Version None)
Quarter: 2007Q4

REPORT INFORMATION
  Report Type: 
  Country: None (occurrence: None)
  Receive Date: 20071022
  Receipt Date: 20071009
  Transmission Date: 20080405
  Serious: Yes (Hospitalization)
  Sender: FDA-Public Use
  Company Number: PHEH2007US13340

PATIENT
  Age: 69 Year
  Sex: Female

DRUGS (10)
  1. DIOVAN [Suspect]
     Dosage: UNK, UNK
  2. COREG [Suspect]
     Indication: HYPERTENSION
     Dosage: 3.25 MG, BID
     Dates: start: 20030101, end: 20050101
  3. COREG [Suspect]
     Dosage: 6.25 MG, BID
     Dates: start: 20050101, end: 20070914
  4. LORAZEPAM [Concomitant]
     Dosage: UNK, UNK
  5. CLOPIDOGREL BISULFATE [Concomitant]
     Dosage: UNK, UNK
  6. ASPIRIN [Concomitant]
     Dosage: UNK, UNK
  7. TORSEMIDE [Concomitant]
     Dosage: UNK,UNK
  8. POTASSIUM CHLORIDE [Concomitant]
     Dosage: UNK, UNK
  9. WARFARIN [Concomitant]
     Dosage: UNK, UNK
  10. CETIRIZINE HYDROCHLORIDE [Concomitant]
     Dosage: UNK, UNK

REACTIONS (1)
  - HEART RATE INCREASED [None]
